FAERS Safety Report 6122480-6 (Version None)
Quarter: 2009Q1

REPORT INFORMATION
  Report Type: 
  Country: None (occurrence: None)
  Receive Date: 20090318
  Receipt Date: 20090205
  Transmission Date: 20090719
  Serious: No
  Sender: FDA-Public Use
  Company Number: US-ASTRAZENECA-2009UW00650

PATIENT
  Age: 62 Year
  Sex: Female
  Weight: 58.5 kg

DRUGS (4)
  1. SYMBICORT [Suspect]
     Dosage: 2 PUFFS TWICE A DAY
     Route: 055
     Dates: start: 20081229, end: 20090107
  2. TUSSIONEX [Concomitant]
     Indication: COUGH
  3. BIAXIN [Concomitant]
     Indication: PNEUMONIA
  4. VERAMYST [Concomitant]
     Indication: RHINITIS ALLERGIC

REACTIONS (3)
  - FEELING JITTERY [None]
  - MEDICATION ERROR [None]
  - TREMOR [None]
